FAERS Safety Report 9787028 (Version 1)
Quarter: 2013Q4

REPORT INFORMATION
  Report Type: Spontaneous
  Country: US (occurrence: US)
  Receive Date: 20131227
  Receipt Date: 20131227
  Transmission Date: 20140711
  Serious: No
  Sender: FDA-Public Use
  Company Number: US-GILEAD-2013-0090604

PATIENT
  Age: 84 Year
  Sex: Female

DRUGS (1)
  1. RANEXA [Suspect]
     Indication: CHEST PAIN
     Dosage: UNK
     Route: 048
     Dates: start: 2012

REACTIONS (2)
  - Therapeutic response unexpected [Unknown]
  - Ejection fraction abnormal [Unknown]
